FAERS Safety Report 6289378-4 (Version None)
Quarter: 2009Q3

REPORT INFORMATION
  Report Type: 
  Country: None (occurrence: None)
  Receive Date: 20090728
  Receipt Date: 20090728
  Transmission Date: 20100115
  Serious: Yes (Hospitalization)
  Sender: FDA-Public Use
  Company Number: None

PATIENT
  Age: 64 Year
  Sex: Female
  Weight: 63 kg

DRUGS (1)
  1. ADENOSINE [Suspect]
     Indication: SCAN MYOCARDIAL PERFUSION
     Dosage: 140 MICROGRAMS/KG/MIN ONE DOSE

REACTIONS (5)
  - AMNESIA [None]
  - CONFUSIONAL STATE [None]
  - MENINGIOMA [None]
  - RETROGRADE AMNESIA [None]
  - TACHYCARDIA [None]
